FAERS Safety Report 20099568 (Version 2)
Quarter: 2022Q4

REPORT INFORMATION
  Report Type: Spontaneous
  Country: US (occurrence: US)
  Receive Date: 20211123
  Receipt Date: 20221006
  Transmission Date: 20230113
  Serious: Yes (Other)
  Sender: FDA-Public Use
  Company Number: US-ENDO PHARMACEUTICALS INC-2021-012445

PATIENT
  Sex: Female
  Weight: 52.154 kg

DRUGS (3)
  1. QWO [Suspect]
     Active Substance: COLLAGENASE CLOSTRIDIUM HISTOLYTICUM-AAES
     Indication: Cellulite
     Dosage: UNK UNKNOWN, UNKNOWN (12 INJECTIONS - 6 IN EACH THIGH)
     Route: 065
     Dates: start: 20211005
  2. VITAMIN C [Concomitant]
     Active Substance: ASCORBIC ACID
     Indication: Sleep disorder
     Dosage: UNK UNKNOWN, DAILY
     Route: 048
  3. BIOTIN [Concomitant]
     Active Substance: BIOTIN
     Indication: Vitamin supplementation
     Dosage: UNK UNKNOWN, PRN
     Route: 048

REACTIONS (15)
  - Muscle injury [Not Recovered/Not Resolved]
  - Pain in extremity [Not Recovered/Not Resolved]
  - Fatigue [Not Recovered/Not Resolved]
  - Musculoskeletal stiffness [Not Recovered/Not Resolved]
  - Gait inability [Not Recovered/Not Resolved]
  - White blood cell count increased [Unknown]
  - Muscle atrophy [Unknown]
  - Deformity [Unknown]
  - Inflammation [Unknown]
  - Swelling [Unknown]
  - Skin mass [Unknown]
  - Ecchymosis [Unknown]
  - Injection site pain [Unknown]
  - Wrong technique in product usage process [Unknown]
  - Off label use [Recovered/Resolved]

NARRATIVE: CASE EVENT DATE: 20210101
